FAERS Safety Report 19677288 (Version 3)
Quarter: 2021Q4

REPORT INFORMATION
  Report Type: Spontaneous
  Country: US (occurrence: US)
  Receive Date: 20210810
  Receipt Date: 20211210
  Transmission Date: 20220304
  Serious: No
  Sender: FDA-Public Use
  Company Number: US-GLAXOSMITHKLINE-US2021AMR166949

PATIENT
  Age: 53 Year
  Sex: Female

DRUGS (1)
  1. ZEJULA [Suspect]
     Active Substance: NIRAPARIB
     Indication: Product used for unknown indication
     Dosage: 200 MG, QD
     Dates: start: 20210802

REACTIONS (2)
  - Constipation [Unknown]
  - Hypertension [Unknown]

NARRATIVE: CASE EVENT DATE: 20210801
